FAERS Safety Report 5158989-1 (Version None)
Quarter: 2006Q4

REPORT INFORMATION
  Report Type: 
  Country: None (occurrence: None)
  Receive Date: 20061117
  Receipt Date: 20061108
  Transmission Date: 20070319
  Serious: Yes (Hospitalization)
  Sender: FDA-Public Use
  Company Number: 224635

PATIENT
  Age: 51 Year
  Sex: Female
  Weight: 50.8 kg

DRUGS (7)
  1. XOLAIR [Suspect]
     Indication: ASTHMA
     Dosage: 150 MG, Q4W, SUBCUTANEOUS
     Route: 058
     Dates: start: 20040401, end: 20060502
  2. XOLAIR [Suspect]
  3. XOLAIR [Suspect]
  4. ADVAIR DISKUS 100/50 [Concomitant]
  5. SINGULAIR [Concomitant]
  6. FLONASE [Concomitant]
  7. ASTELIN [Concomitant]

REACTIONS (8)
  - BACTERIAL INFECTION [None]
  - DEHYDRATION [None]
  - DIARRHOEA [None]
  - DRUG EFFECT DECREASED [None]
  - MUSCLE SPASMS [None]
  - PHARMACEUTICAL PRODUCT COMPLAINT [None]
  - RASH GENERALISED [None]
  - UPPER RESPIRATORY TRACT INFECTION [None]
